FAERS Safety Report 9178347 (Version 2)
Quarter: 2013Q2

REPORT INFORMATION
  Report Type: Spontaneous
  Country: US (occurrence: US)
  Receive Date: 20121029
  Receipt Date: 20130506
  Transmission Date: 20140414
  Serious: No
  Sender: FDA-Public Use
  Company Number: US-009507513-1208USA008425

PATIENT
  Age: 47 Year
  Sex: Male

DRUGS (5)
  1. PEGINTRON [Suspect]
     Indication: HEPATITIS C
     Dosage: 150 MICROGRAM, QW(4SYR/PK); 150MCG/0.5ML
     Route: 058
     Dates: start: 201202, end: 20120913
  2. RIBAPAK [Suspect]
     Dosage: 600 MG, QD
     Dates: start: 201202, end: 20120913
  3. LEXAPRO [Concomitant]
     Dosage: 10 MG, UNK
  4. IMITREX (SUMATRIPTAN SUCCINATE) [Concomitant]
     Dosage: 100 MG, UNK
  5. DEPAKOTE [Concomitant]
     Dosage: 500 MG, UNK

REACTIONS (2)
  - Nausea [Unknown]
  - Drug dose omission [Unknown]
